FAERS Safety Report 6269098-2 (Version None)
Quarter: 2009Q3

REPORT INFORMATION
  Report Type: 
  Country: None (occurrence: None)
  Receive Date: 20090714
  Receipt Date: 20090714
  Transmission Date: 20100115
  Serious: No
  Sender: FDA-Public Use
  Company Number: None

PATIENT
  Age: 38 Year
  Sex: Male
  Weight: 88.4514 kg

DRUGS (1)
  1. LEVAQUIN [Suspect]
     Indication: EPIDIDYMITIS
     Dosage: 500 MG ONE/DAY PO
     Route: 048
     Dates: start: 20090709, end: 20090712

REACTIONS (3)
  - ARTHRALGIA [None]
  - COGNITIVE DISORDER [None]
  - XANTHOPSIA [None]
